FAERS Safety Report 16418299 (Version 1)
Quarter: 2019Q2

REPORT INFORMATION
  Report Type: Spontaneous
  Country: NL (occurrence: NL)
  Receive Date: 20190612
  Receipt Date: 20190612
  Transmission Date: 20190711
  Serious: Yes (Other)
  Sender: FDA-Public Use
  Company Number: NL-TEVA-2019-NL-1061168

PATIENT
  Age: 64 Year
  Sex: Female

DRUGS (3)
  1. DIFFERIN GEL 1MG/G [Concomitant]
     Dosage: LUBRICATE ONCE A DAY
     Dates: start: 20190104
  2. DESLORATADINE 5 MG TABL [Concomitant]
     Dosage: 1 PER DAG 1 TABLET
     Dates: start: 20180704
  3. VERAPAMIL [Suspect]
     Active Substance: VERAPAMIL HYDROCHLORIDE
     Indication: HYPERTENSION
     Dosage: 1 TIME DAILY 1 PIECE
     Dates: start: 20190129, end: 20190204

REACTIONS (1)
  - Hypersensitivity vasculitis [Recovered/Resolved with Sequelae]

NARRATIVE: CASE EVENT DATE: 20190203
